FAERS Safety Report 9587277 (Version 1)
Quarter: 2013Q4

REPORT INFORMATION
  Report Type: Spontaneous
  Country: AT (occurrence: AT)
  Receive Date: 20131003
  Receipt Date: 20131003
  Transmission Date: 20140711
  Serious: Yes (Other)
  Sender: FDA-Public Use
  Company Number: PHHY2013AT108777

PATIENT
  Sex: Female

DRUGS (4)
  1. EBETREXAT [Suspect]
     Indication: CROHN^S DISEASE
     Dosage: UNK UKN, UNK
     Route: 058
  2. EBETREXAT [Suspect]
     Dosage: UNK UKN, UNK
     Route: 042
     Dates: start: 200908
  3. REMICADE [Suspect]
     Dosage: UNK UKN, UNK
     Dates: start: 200908
  4. HUMIRA [Suspect]

REACTIONS (12)
  - Gastrooesophageal reflux disease [Recovering/Resolving]
  - Gastritis [Unknown]
  - Abdominal pain [Recovered/Resolved]
  - Gastrointestinal inflammation [Recovering/Resolving]
  - Anal stenosis [Unknown]
  - Arthropathy [Recovering/Resolving]
  - Rectal ulcer [Recovering/Resolving]
  - Abnormal faeces [Unknown]
  - Herpes simplex [Recovering/Resolving]
  - Injection site reaction [Unknown]
  - Injection site pain [Unknown]
  - Injection site erythema [Unknown]
